FAERS Safety Report 22127677 (Version 1)
Quarter: 2023Q1

REPORT INFORMATION
  Report Type: Spontaneous
  Country: US (occurrence: US)
  Receive Date: 20230323
  Receipt Date: 20230323
  Transmission Date: 20230418
  Serious: No
  Sender: FDA-Public Use
  Company Number: US-ALLERGAN-2241126US

PATIENT
  Age: 40 Year
  Sex: Female

DRUGS (1)
  1. DALVANCE [Suspect]
     Active Substance: DALBAVANCIN
     Indication: Staphylococcal bacteraemia
     Dosage: 1500 MG, SINGLE
     Route: 042
     Dates: start: 20221206

REACTIONS (4)
  - Periorbital oedema [Unknown]
  - Periorbital pain [Unknown]
  - Oedema peripheral [Unknown]
  - Pain [Unknown]

NARRATIVE: CASE EVENT DATE: 20221211
